FAERS Safety Report 9904759 (Version 1)
Quarter: 2014Q1

REPORT INFORMATION
  Report Type: Spontaneous
  Country: US (occurrence: US)
  Receive Date: 20140218
  Receipt Date: 20140218
  Transmission Date: 20141002
  Serious: Yes (Other)
  Sender: FDA-Public Use
  Company Number: US-SA-2014SA017876

PATIENT
  Age: 69 Year
  Sex: Female

DRUGS (2)
  1. LANTUS SOLOSTAR [Suspect]
     Indication: TYPE 2 DIABETES MELLITUS
     Dosage: DOSE:36 UNIT(S)
     Route: 058
     Dates: start: 2007
  2. SOLOSTAR [Concomitant]
     Dates: start: 2007

REACTIONS (7)
  - Dementia Alzheimer^s type [Unknown]
  - Nervous system disorder [Unknown]
  - Memory impairment [Unknown]
  - Macular degeneration [Unknown]
  - Visual acuity reduced [Unknown]
  - Dry mouth [Unknown]
  - Gait disturbance [Unknown]
